FAERS Safety Report 13047393 (Version 1)
Quarter: 2016Q4

REPORT INFORMATION
  Report Type: Spontaneous
  Country: GB (occurrence: GB)
  Receive Date: 20161220
  Receipt Date: 20161220
  Transmission Date: 20170207
  Serious: Yes (Hospitalization)
  Sender: FDA-Public Use
  Company Number: GB-TEVA-720586ACC

PATIENT
  Age: 50 Year

DRUGS (7)
  1. MIRTAZAPINE. [Concomitant]
     Active Substance: MIRTAZAPINE
     Dosage: 30 MILLIGRAM DAILY; AT NIGHT.
  2. ZOMORPH [Concomitant]
     Active Substance: MORPHINE SULFATE
  3. CELECOXIB. [Suspect]
     Active Substance: CELECOXIB
     Dosage: 400 MILLIGRAM DAILY;
  4. OMEPRAZOLE. [Concomitant]
     Active Substance: OMEPRAZOLE
     Dosage: 20 MILLIGRAM DAILY;
  5. ZOMORPH [Concomitant]
     Active Substance: MORPHINE SULFATE
     Dosage: 20 MILLIGRAM DAILY;
  6. PREGABALIN. [Concomitant]
     Active Substance: PREGABALIN
     Dosage: 900 MILLIGRAM DAILY;
  7. BISOPROLOL [Concomitant]
     Active Substance: BISOPROLOL
     Dosage: 2.5 MILLIGRAM DAILY;

REACTIONS (2)
  - Dehydration [Unknown]
  - Acute kidney injury [Recovered/Resolved]
